FAERS Safety Report 14165477 (Version 1)
Quarter: 2017Q4

REPORT INFORMATION
  Report Type: Spontaneous
  Country: ZA (occurrence: ZA)
  Receive Date: 20171107
  Receipt Date: 20171107
  Transmission Date: 20180321
  Serious: Yes (Hospitalization, Other)
  Sender: FDA-Public Use
  Company Number: ZA-MYLANLABS-2017M1071004

PATIENT
  Age: 64 Year
  Sex: Female

DRUGS (3)
  1. MENOGRAINE [Suspect]
     Active Substance: CLONIDINE HYDROCHLORIDE
     Indication: HORMONE THERAPY
     Dosage: 0.025 MG, UNK
     Route: 048
  2. DORMONOCT [Suspect]
     Active Substance: LOPRAZOLAM
     Indication: INSOMNIA
     Dosage: 2 MG, UNK
     Route: 048
  3. CAPTOPRIL MYLAN 50 MG TABLETTEN [Suspect]
     Active Substance: CAPTOPRIL
     Indication: HYPERTENSION
     Dosage: UNK
     Route: 048

REACTIONS (1)
  - Hospitalisation [Unknown]
